FAERS Safety Report 6257753-X (Version None)
Quarter: 2009Q3

REPORT INFORMATION
  Report Type: 
  Country: None (occurrence: None)
  Receive Date: 20090706
  Receipt Date: 20090626
  Transmission Date: 20100115
  Serious: Yes (Other)
  Sender: FDA-Public Use
  Company Number: IT-CELGENEUS-083-20785-09062012

PATIENT
  Age: 33 Year
  Sex: Female

DRUGS (8)
  1. THALIDOMIDE [Suspect]
     Indication: DERMATOMYOSITIS
     Route: 048
     Dates: start: 20070101
  2. THALIDOMIDE [Suspect]
     Route: 048
     Dates: start: 20070101, end: 20070101
  3. IMMUNOSORBA [Suspect]
     Indication: DERMATOMYOSITIS
     Route: 065
     Dates: start: 20070101
  4. IMMUNOSORBA [Suspect]
     Route: 065
     Dates: start: 20060801, end: 20070101
  5. IMMUNOSORBA [Suspect]
     Route: 065
     Dates: start: 20070101, end: 20070101
  6. CIPROFLOXACIN [Concomitant]
     Indication: SKIN LESION
     Route: 065
     Dates: start: 20070101
  7. RIFAMPICIN [Concomitant]
     Indication: SKIN LESION
     Route: 065
     Dates: start: 20070101
  8. MYCOPHENOLATE MOFETIL [Concomitant]
     Indication: DERMATOMYOSITIS
     Route: 065
     Dates: start: 20060101

REACTIONS (2)
  - ARTHRITIS BACTERIAL [None]
  - INFECTION [None]
